FAERS Safety Report 21190203 (Version 1)
Quarter: 2022Q3

REPORT INFORMATION
  Report Type: Spontaneous
  Country: US (occurrence: None)
  Receive Date: 20220809
  Receipt Date: 20220809
  Transmission Date: 20221027
  Serious: Yes (Death)
  Sender: FDA-Public Use
  Company Number: None

PATIENT
  Age: 64 Year
  Sex: Female
  Weight: 68.95 kg

DRUGS (16)
  1. IBRANCE [Suspect]
     Active Substance: PALBOCICLIB
     Dosage: 125MG  21D ON 7D OFF ORAL?
     Route: 048
     Dates: end: 20220807
  2. ALBUTEROL [Concomitant]
  3. CETIRIZINE [Concomitant]
     Active Substance: CETIRIZINE HYDROCHLORIDE
  4. COMBIGAN [Concomitant]
     Active Substance: BRIMONIDINE TARTRATE\TIMOLOL MALEATE
  5. CYCLOPTHOLATE [Concomitant]
  6. FENTANYL [Concomitant]
     Active Substance: FENTANYL
  7. FUROSEMIDE [Concomitant]
     Active Substance: FUROSEMIDE
  8. HUMALOG [Concomitant]
     Active Substance: INSULIN LISPRO
  9. HYDRALAZINE [Concomitant]
     Active Substance: HYDRALAZINE HYDROCHLORIDE
  10. HYDROCHLOROTHIAZIDE [Concomitant]
     Active Substance: HYDROCHLOROTHIAZIDE
  11. INSULIN LISPRO [Concomitant]
     Active Substance: INSULIN LISPRO
  12. LETROZOLE [Concomitant]
     Active Substance: LETROZOLE
  13. METOPROLOL [Concomitant]
     Active Substance: METOPROLOL
  14. NYSTATIN [Concomitant]
  15. PANTROPRAZOLE [Concomitant]
  16. TRESIBA [Concomitant]
     Active Substance: INSULIN DEGLUDEC

REACTIONS (1)
  - Death [None]

NARRATIVE: CASE EVENT DATE: 20220807
